FAERS Safety Report 16693227 (Version 2)
Quarter: 2019Q3

REPORT INFORMATION
  Report Type: Spontaneous
  Country: US (occurrence: US)
  Receive Date: 20190812
  Receipt Date: 20190826
  Transmission Date: 20191004
  Serious: No
  Sender: FDA-Public Use
  Company Number: US-GLAXOSMITHKLINE-US2019144742

PATIENT
  Age: 70 Year
  Sex: Male

DRUGS (4)
  1. ABREVA [Suspect]
     Active Substance: DOCOSANOL
     Indication: ORAL HERPES
     Dosage: UNK,(APPLIED IT 5-6 TIMES A DAY)
     Dates: start: 20190709
  2. CARMEX NOS [Concomitant]
     Active Substance: CAMPHOR\MENTHOL\PHENOL\POTASSIUM ALUM\SALICYLIC ACID
     Indication: PRODUCT USED FOR UNKNOWN INDICATION
     Dosage: UNK
  3. ABREVA [Suspect]
     Active Substance: DOCOSANOL
     Dosage: UNK
  4. LYSINE TABLET [Concomitant]
     Indication: ORAL HERPES
     Dosage: UNK

REACTIONS (1)
  - Inappropriate schedule of product administration [Unknown]
